FAERS Safety Report 8018001-3 (Version None)
Quarter: 2012Q1

REPORT INFORMATION
  Report Type: 
  Country: None (occurrence: None)
  Receive Date: 20120103
  Receipt Date: 20111222
  Transmission Date: 20120608
  Serious: Yes (Hospitalization, Other)
  Sender: FDA-Public Use
  Company Number: US-BAYER-2011-123177

PATIENT
  Sex: Female

DRUGS (2)
  1. YAZ [Suspect]
     Dosage: UNK
     Dates: start: 20071228, end: 20080130
  2. YASMIN [Suspect]
     Dosage: UNK
     Dates: start: 20070917, end: 20080130

REACTIONS (3)
  - INJURY [None]
  - PAIN [None]
  - CHOLECYSTITIS [None]
